FAERS Safety Report 20181402 (Version 2)
Quarter: 2022Q2

REPORT INFORMATION
  Report Type: Spontaneous
  Country: US (occurrence: US)
  Receive Date: 20211214
  Receipt Date: 20220512
  Transmission Date: 20220720
  Serious: No
  Sender: FDA-Public Use
  Company Number: US-PFIZER INC-202101572486

PATIENT
  Age: 20 Year
  Sex: Male

DRUGS (2)
  1. XELJANZ XR [Suspect]
     Active Substance: TOFACITINIB CITRATE
     Dosage: 11 MG
     Dates: start: 20200701
  2. XELJANZ XR [Suspect]
     Active Substance: TOFACITINIB CITRATE
     Dosage: 11 MG
     Dates: start: 20201130

REACTIONS (3)
  - Respiratory syncytial virus infection [Recovered/Resolved]
  - Illness [Unknown]
  - Sinusitis [Unknown]

NARRATIVE: CASE EVENT DATE: 20210901
